FAERS Safety Report 5726272-9 (Version None)
Quarter: 2008Q2

REPORT INFORMATION
  Report Type: 
  Country: None (occurrence: None)
  Receive Date: 20080501
  Receipt Date: 20080501
  Transmission Date: 20081010
  Serious: Yes (Hospitalization)
  Sender: FDA-Public Use
  Company Number: None

PATIENT
  Age: 63 Year
  Sex: Male

DRUGS (2)
  1. METOLAZONE [Suspect]
     Indication: RENAL DISORDER
     Dosage: 5 MG  BID  PO
     Route: 048
     Dates: start: 20061026, end: 20080129
  2. BUMETANIDE [Suspect]
     Indication: RENAL DISORDER
     Dosage: 1 MG  BID  PO
     Route: 048
     Dates: start: 20080125, end: 20080129

REACTIONS (3)
  - DEHYDRATION [None]
  - NAUSEA [None]
  - VOMITING [None]
